FAERS Safety Report 10061550 (Version 2)
Quarter: 2014Q3

REPORT INFORMATION
  Report Type: Spontaneous
  Country: FR (occurrence: None)
  Receive Date: 20140403
  Receipt Date: 20140722
  Transmission Date: 20150326
  Serious: Yes (Other)
  Sender: FDA-Public Use
  Company Number: TPU2014-00070

PATIENT
  Age: 83 Year
  Sex: Female

DRUGS (8)
  1. VERSATIS [Suspect]
     Active Substance: LIDOCAINE
     Indication: PRODUCT USED FOR UNKNOWN INDICATION
     Route: 061
  2. ANASTROZOLE (ANASTROZOLE) [Suspect]
     Active Substance: ANASTROZOLE
     Indication: PRODUCT USED FOR UNKNOWN INDICATION
     Route: 048
  3. QUTENZA [Suspect]
     Active Substance: CAPSAICIN
     Indication: PRODUCT USED FOR UNKNOWN INDICATION
     Route: 061
     Dates: end: 20131030
  4. NEURONTIN [Suspect]
     Active Substance: GABAPENTIN
     Indication: PRODUCT USED FOR UNKNOWN INDICATION
     Dosage: 3, 1 IN 1 D, ORAL
     Route: 048
  5. BROAD SPECTRUM ANTIBIOTICS (BROAD SPECTRUM ANTIBIOTICS) [Concomitant]
  6. AVLOCARDYL (PROPRANOLOL) [Suspect]
     Active Substance: PROPRANOLOL HYDROCHLORIDE
     Indication: PRODUCT USED FOR UNKNOWN INDICATION
     Route: 048
  7. CYMBALTA [Suspect]
     Active Substance: DULOXETINE HYDROCHLORIDE
     Indication: PRODUCT USED FOR UNKNOWN INDICATION
     Dosage: 60 MG, 1 IN 1 D, ORAL
     Route: 048
  8. GELUPRANE (PARACETAMOL) [Suspect]
     Active Substance: ACETAMINOPHEN
     Indication: PRODUCT USED FOR UNKNOWN INDICATION
     Dosage: 3, 3 IN 1 D, ORAL
     Route: 048

REACTIONS (4)
  - Visual acuity reduced [None]
  - Visual field defect [None]
  - Keratitis [None]
  - Dry eye [None]

NARRATIVE: CASE EVENT DATE: 20120417
